FAERS Safety Report 7797407-1 (Version None)
Quarter: 2011Q4

REPORT INFORMATION
  Report Type: 
  Country: None (occurrence: None)
  Receive Date: 20111003
  Receipt Date: 20110927
  Transmission Date: 20120403
  Serious: Yes (Death, Hospitalization)
  Sender: FDA-Public Use
  Company Number: DE-AGG-09-2011-0158

PATIENT
  Sex: Male

DRUGS (5)
  1. TIROFIBAN HCL [Suspect]
     Dosage: INTRAVENOUS
     Route: 042
     Dates: start: 20091007, end: 20091008
  2. ASPIRIN [Concomitant]
  3. STAPHYLOCOCCUS AUREUS [Concomitant]
  4. METOPROLOL SUCCINATE [Concomitant]
  5. ENALAPRIL MALEATE [Concomitant]

REACTIONS (11)
  - ACUTE MYOCARDIAL INFARCTION [None]
  - MYOCARDIAL ISCHAEMIA [None]
  - SYNCOPE [None]
  - LOSS OF CONSCIOUSNESS [None]
  - CEREBRAL HAEMORRHAGE [None]
  - BENIGN PROSTATIC HYPERPLASIA [None]
  - TROPONIN T INCREASED [None]
  - PUPILS UNEQUAL [None]
  - AREFLEXIA [None]
  - BRAIN HERNIATION [None]
  - BRADYCARDIA [None]
